FAERS Safety Report 4544256-3 (Version None)
Quarter: 2004Q4

REPORT INFORMATION
  Report Type: 
  Country: None (occurrence: None)
  Receive Date: 20041230
  Receipt Date: 20041221
  Transmission Date: 20050328
  Serious: Yes (Hospitalization)
  Sender: FDA-Public Use
  Company Number: TCI2004A04609

PATIENT
  Age: 68 Year
  Sex: Male

DRUGS (10)
  1. ACTOS [Suspect]
     Indication: DIABETES MELLITUS
     Dosage: 15 MG (15 MG, 1 IN 1 D)
     Route: 048
     Dates: start: 20041209, end: 20041214
  2. BASEN TABLETS 0.3 (VOGLIBOSE) [Concomitant]
  3. LIPITOR [Concomitant]
  4. TICLOPIDINE HYDROCHLORIDE [Concomitant]
  5. ETHYL ICOSAPENTATE [Concomitant]
  6. LISINOPRIL [Concomitant]
  7. GLIMEPIRIDE [Concomitant]
  8. BROTIZOLAM [Concomitant]
  9. LOSARTAN POTASSIUM [Concomitant]
  10. CARVEDILOL [Concomitant]

REACTIONS (5)
  - ABASIA [None]
  - BLOOD GLUCOSE INCREASED [None]
  - CONCOMITANT DISEASE PROGRESSION [None]
  - DIZZINESS [None]
  - GAIT DISTURBANCE [None]
